FAERS Safety Report 7155768-0 (Version None)
Quarter: 2010Q4

REPORT INFORMATION
  Report Type: 
  Country: None (occurrence: None)
  Receive Date: 20101123
  Receipt Date: 20100917
  Transmission Date: 20110411
  Serious: No
  Sender: FDA-Public Use
  Company Number: 005340

PATIENT
  Sex: Female

DRUGS (2)
  1. CIMZIA [Suspect]
     Indication: CROHN'S DISEASE
     Dosage: 400 MG SUBCUTANEOUS
     Route: 058
     Dates: start: 20080929
  2. CIMZIA [Suspect]

REACTIONS (5)
  - CONTUSION [None]
  - OROPHARYNGEAL PAIN [None]
  - RASH GENERALISED [None]
  - SINUS CONGESTION [None]
  - STAPHYLOCOCCAL INFECTION [None]
